FAERS Safety Report 7260534-1 (Version None)
Quarter: 2011Q1

REPORT INFORMATION
  Report Type: 
  Country: None (occurrence: None)
  Receive Date: 20110130
  Receipt Date: 20101230
  Transmission Date: 20110831
  Serious: No
  Sender: FDA-Public Use
  Company Number: US-ABBOTT-11P-163-0694793-00

PATIENT
  Age: 54 Year
  Sex: Female

DRUGS (4)
  1. FOLIC ACID [Concomitant]
     Indication: VITAMIN SUPPLEMENTATION
  2. SYNTHROID [Concomitant]
     Indication: THYROID DISORDER
  3. METHOTREXATE [Concomitant]
     Indication: RHEUMATOID ARTHRITIS
  4. HUMIRA [Suspect]
     Indication: RHEUMATOID ARTHRITIS
     Dates: start: 20040801

REACTIONS (11)
  - RESPIRATORY TRACT CONGESTION [None]
  - OROPHARYNGEAL PAIN [None]
  - INCREASED UPPER AIRWAY SECRETION [None]
  - LUNG INFECTION [None]
  - DYSPNOEA [None]
  - HEADACHE [None]
  - NAUSEA [None]
  - INFLUENZA [None]
  - RESPIRATORY DISORDER [None]
  - TUBERCULIN TEST POSITIVE [None]
  - COUGH [None]
